FAERS Safety Report 6969384-4 (Version None)
Quarter: 2010Q3

REPORT INFORMATION
  Report Type: 
  Country: None (occurrence: None)
  Receive Date: 20100902
  Receipt Date: 20100818
  Transmission Date: 20110219
  Serious: Yes (Hospitalization)
  Sender: FDA-Public Use
  Company Number: 1000015721

PATIENT
  Age: 84 Year
  Sex: Male

DRUGS (10)
  1. MEMANTINE HCL [Suspect]
     Indication: DEMENTIA ALZHEIMER'S TYPE
     Dosage: 10 MG (10 MG, 1 IN 1 D), ORAL
     Route: 048
     Dates: start: 20100616
  2. MEMANTINE HCL [Suspect]
     Indication: DEMENTIA ALZHEIMER'S TYPE
     Dosage: 20 MG (20 MG, 1 IN 1 D), ORAL
     Route: 048
     Dates: end: 20100730
  3. PRAVASTATIN [Concomitant]
  4. METOPROLOL TARTRATE [Concomitant]
  5. ASPIRIN [Concomitant]
  6. ARICEPT [Concomitant]
  7. ZOLPIDEM [Concomitant]
  8. LASIX [Concomitant]
  9. OMEPRAZOLE [Concomitant]
  10. LAMOTRIGINE [Concomitant]

REACTIONS (3)
  - CONFUSIONAL STATE [None]
  - LOGORRHOEA [None]
  - SLEEP DISORDER [None]
